FAERS Safety Report 9371606 (Version 1)
Quarter: 2013Q2

REPORT INFORMATION
  Report Type: Report from Study
  Country: BR (occurrence: BR)
  Receive Date: 20130627
  Receipt Date: 20130627
  Transmission Date: 20140414
  Serious: Yes (Life-Threatening, Other)
  Sender: FDA-Public Use
  Company Number: PHHY2013BR065432

PATIENT
  Age: 37 Year
  Sex: Male

DRUGS (3)
  1. MYFORTIC [Suspect]
     Indication: IMMUNOSUPPRESSION
     Dosage: UNK
  2. TACROLIMUS [Suspect]
     Indication: IMMUNOSUPPRESSION
     Dosage: UNK
  3. EVEROLIMUS [Concomitant]
     Indication: IMMUNOSUPPRESSION

REACTIONS (4)
  - Complications of transplanted kidney [Recovering/Resolving]
  - Anuria [Recovering/Resolving]
  - Polyuria [Recovering/Resolving]
  - Renal artery stenosis [Recovering/Resolving]
